FAERS Safety Report 4348378-1 (Version None)
Quarter: 2004Q2

REPORT INFORMATION
  Report Type: 
  Country: None (occurrence: None)
  Receive Date: 20040427
  Receipt Date: 20040415
  Transmission Date: 20050107
  Serious: Yes (Other)
  Sender: FDA-Public Use
  Company Number: PHEH2004US04276

PATIENT
  Age: 35 Year
  Sex: Female

DRUGS (4)
  1. RITALIN [Suspect]
     Indication: ATTENTION DEFICIT/HYPERACTIVITY DISORDER
     Dosage: 20 MG, QD
     Dates: start: 20030501, end: 20030701
  2. WELLBUTRIN [Concomitant]
  3. SERZONE [Concomitant]
  4. ALLEGRA-D                          /01367401/ [Concomitant]

REACTIONS (1)
  - DEPRESSION SUICIDAL [None]
